FAERS Safety Report 12802617 (Version 1)
Quarter: 2016Q4

REPORT INFORMATION
  Report Type: Spontaneous
  Country: CH (occurrence: CH)
  Receive Date: 20161003
  Receipt Date: 20161003
  Transmission Date: 20170207
  Serious: Yes (Hospitalization, Other)
  Sender: FDA-Public Use
  Company Number: CH-ELI_LILLY_AND_COMPANY-CH201609008005

PATIENT
  Age: 50 Year
  Sex: Male
  Weight: 115 kg

DRUGS (7)
  1. KETALGIN (METHADONE) [Suspect]
     Active Substance: METHADONE HYDROCHLORIDE
     Indication: DRUG ABUSE
     Dosage: 15 DF, QD
     Route: 048
     Dates: start: 201511
  2. SERESTA [Suspect]
     Active Substance: OXAZEPAM
     Indication: PRODUCT USED FOR UNKNOWN INDICATION
     Dosage: 30 MG, TID
     Route: 048
  3. QUILONORM                          /00033702/ [Concomitant]
     Active Substance: LITHIUM CARBONATE
     Dosage: 900 MG, QD
     Route: 048
  4. SIMVASTATIN MEPHA [Concomitant]
     Active Substance: SIMVASTATIN
     Dosage: 40 MG, QD
     Route: 048
  5. ZYPREXA [Suspect]
     Active Substance: OLANZAPINE
     Indication: PRODUCT USED FOR UNKNOWN INDICATION
     Dosage: 5 MG, BID
     Route: 048
  6. STILNOX [Suspect]
     Active Substance: ZOLPIDEM TARTRATE
     Indication: PRODUCT USED FOR UNKNOWN INDICATION
     Dosage: 12.5 MG, QD
     Route: 048
     Dates: end: 201607
  7. XANAX [Suspect]
     Active Substance: ALPRAZOLAM
     Indication: PRODUCT USED FOR UNKNOWN INDICATION
     Dosage: 1 MG, TID
     Route: 048

REACTIONS (15)
  - Hyperprolactinaemia [Unknown]
  - General physical health deterioration [Unknown]
  - Hyperventilation [Unknown]
  - Somnolence [Unknown]
  - Sleep apnoea syndrome [Unknown]
  - Fall [Recovered/Resolved]
  - Glucocorticoid deficiency [Recovered/Resolved]
  - Laceration [Unknown]
  - Disorientation [Unknown]
  - Psychomotor retardation [Recovered/Resolved]
  - Wound [Unknown]
  - Hypogonadism [Unknown]
  - Rib fracture [Unknown]
  - Hypothalamo-pituitary disorder [Unknown]
  - Oxygen saturation decreased [Unknown]

NARRATIVE: CASE EVENT DATE: 20160727
